FAERS Safety Report 9890787 (Version 1)
Quarter: 2014Q1

REPORT INFORMATION
  Report Type: Spontaneous
  Country: US (occurrence: None)
  Receive Date: 20140210
  Receipt Date: 20140210
  Transmission Date: 20141002
  Serious: Yes (Life-Threatening, Hospitalization)
  Sender: FDA-Public Use
  Company Number: None

PATIENT
  Age: 36 Year
  Sex: Female

DRUGS (1)
  1. MULTIHANCE [Suspect]
     Indication: SCAN WITH CONTRAST
     Route: 042

REACTIONS (5)
  - Dyspnoea [None]
  - Pharyngeal oedema [None]
  - Urticaria [None]
  - Nausea [None]
  - Vomiting [None]
